FAERS Safety Report 12042535 (Version 2)
Quarter: 2016Q1

REPORT INFORMATION
  Report Type: Spontaneous
  Country: US (occurrence: US)
  Receive Date: 20160208
  Receipt Date: 20160323
  Transmission Date: 20160526
  Serious: Yes (Death, Other)
  Sender: FDA-Public Use
  Company Number: US-PFIZER INC-2016067310

PATIENT
  Age: 60 Year
  Sex: Female
  Weight: 49.9 kg

DRUGS (6)
  1. AMLODIPINE BESYLATE. [Concomitant]
     Active Substance: AMLODIPINE BESYLATE
     Dosage: 10MG TABLET ONE EVERY DAY
     Route: 048
  2. METOPROLOL. [Concomitant]
     Active Substance: METOPROLOL
     Indication: BLOOD PRESSURE ABNORMAL
     Dosage: 50 MG, 2X/DAY
     Route: 048
  3. KLONOPIN [Concomitant]
     Active Substance: CLONAZEPAM
     Dosage: UNK
  4. DULOXETINE HYDROCHLORIDE. [Concomitant]
     Active Substance: DULOXETINE HYDROCHLORIDE
     Dosage: 60 MG, 1X/DAY
     Route: 048
  5. TRAZODONE [Concomitant]
     Active Substance: TRAZODONE HYDROCHLORIDE
     Indication: SLEEP DISORDER
     Dosage: 50MG TAKE ONE TABLET BY MOUTH AT BEDTIME AS NEEDED
     Route: 048
  6. CHANTIX [Suspect]
     Active Substance: VARENICLINE TARTRATE
     Indication: SMOKING CESSATION THERAPY
     Dosage: 1 MG(1MG TABLET BY MOUTH TAKE AS DIRECTED )
     Route: 048
     Dates: start: 20150909, end: 20150930

REACTIONS (4)
  - Completed suicide [Fatal]
  - Abnormal behaviour [Not Recovered/Not Resolved]
  - Paranoia [Unknown]
  - Personality change [Unknown]

NARRATIVE: CASE EVENT DATE: 201509
